FAERS Safety Report 8761053 (Version 2)
Quarter: 2012Q4

REPORT INFORMATION
  Report Type: 
  Country: AU (occurrence: AU)
  Receive Date: 20120830
  Receipt Date: 20121226
  Transmission Date: 20130627
  Serious: Yes (Hospitalization)
  Sender: FDA-Public Use
  Company Number: PHHY2012AU074892

PATIENT
  Age: 34 Year
  Sex: Male

DRUGS (1)
  1. CLOZARIL [Suspect]
     Dosage: 300 mg
     Dates: start: 20120531

REACTIONS (2)
  - Schizophrenia [Recovering/Resolving]
  - Hallucination, auditory [Recovering/Resolving]
